FAERS Safety Report 10555343 (Version 1)
Quarter: 2014Q4

REPORT INFORMATION
  Report Type: Spontaneous
  Country: CN (occurrence: CN)
  Receive Date: 20141030
  Receipt Date: 20141030
  Transmission Date: 20150529
  Serious: Yes (Death, Other)
  Sender: FDA-Public Use
  Company Number: CN-TAKEDA-2014JNJ005972

PATIENT

DRUGS (10)
  1. EPIRUBICIN [Suspect]
     Active Substance: EPIRUBICIN
     Indication: PLASMA CELL MYELOMA
     Dosage: 20 MG, DAY 1-2
     Dates: start: 20140729
  2. SULBACTAM [Concomitant]
     Active Substance: SULBACTAM
     Route: 050
  3. LENALIDOMIDE [Suspect]
     Active Substance: LENALIDOMIDE
     Indication: PLASMA CELL MYELOMA
     Dosage: 25 MG, UNK
     Dates: start: 20140523, end: 20140726
  4. CEFOPERAZONE [Concomitant]
     Active Substance: CEFOPERAZONE
  5. TEICOPLANIN [Concomitant]
     Active Substance: TEICOPLANIN
  6. VELCADE [Suspect]
     Active Substance: BORTEZOMIB
     Indication: PLASMA CELL MYELOMA
     Dosage: 1.9 MG, 1, 4, 8, AND 11
  7. DEXAMETHASONE. [Suspect]
     Active Substance: DEXAMETHASONE
     Indication: PLASMA CELL MYELOMA
     Dosage: UNK
     Dates: start: 20140523, end: 20140726
  8. DEXAMETHASONE. [Suspect]
     Active Substance: DEXAMETHASONE
     Dosage: 10 MG, ON DAY 1-4 AND 8-11
     Dates: start: 20140729
  9. GLUTATHIONE [Concomitant]
     Active Substance: GLUTATHIONE
     Route: 050
  10. ENTECAVIR. [Concomitant]
     Active Substance: ENTECAVIR

REACTIONS (5)
  - Interstitial lung disease [Unknown]
  - Disease progression [Fatal]
  - Hepatic cyst [Unknown]
  - Emphysema [Unknown]
  - Inflammation [Unknown]

NARRATIVE: CASE EVENT DATE: 2014
